FAERS Safety Report 9962575 (Version 2)
Quarter: 2014Q1

REPORT INFORMATION
  Report Type: Report from Study
  Country: US (occurrence: US)
  Receive Date: 20140305
  Receipt Date: 20140305
  Transmission Date: 20141002
  Serious: No
  Sender: FDA-Public Use
  Company Number: US-ABBVIE-13P-163-1082747-00

PATIENT
  Age: 54 Year
  Sex: Female

DRUGS (9)
  1. HUMIRA [Suspect]
     Indication: CROHN^S DISEASE
     Dates: start: 20130309
  2. LIALDA [Concomitant]
     Indication: CROHN^S DISEASE
  3. PRISTIQ [Concomitant]
     Indication: DEPRESSION
  4. IMODIUM [Concomitant]
     Indication: DIARRHOEA
  5. SINGULAIR [Concomitant]
     Indication: ALLERGY PROPHYLAXIS
  6. FISH OIL [Concomitant]
     Indication: SUPPLEMENTATION THERAPY
  7. MULTIVITAMIN [Concomitant]
     Indication: VITAMIN SUPPLEMENTATION
  8. IRON [Concomitant]
     Indication: MINERAL SUPPLEMENTATION
     Dosage: OTC
  9. COMPOUNDED HORMONES [Concomitant]
     Indication: PRODUCT USED FOR UNKNOWN INDICATION

REACTIONS (8)
  - Influenza like illness [Not Recovered/Not Resolved]
  - Fatigue [Not Recovered/Not Resolved]
  - Nausea [Not Recovered/Not Resolved]
  - Diarrhoea [Not Recovered/Not Resolved]
  - Pain in extremity [Not Recovered/Not Resolved]
  - Injection site pain [Not Recovered/Not Resolved]
  - Myalgia [Unknown]
  - Flatulence [Unknown]
